FAERS Safety Report 9044162 (Version 1)
Quarter: 2013Q1

REPORT INFORMATION
  Report Type: Spontaneous
  Country: US (occurrence: US)
  Receive Date: 20130130
  Receipt Date: 20130130
  Transmission Date: 20140127
  Serious: Yes (Other)
  Sender: FDA-Public Use
  Company Number: US-ASTELLAS-2013US000943

PATIENT
  Sex: 0

DRUGS (2)
  1. MYRBETRIQ [Suspect]
     Indication: PRODUCT USED FOR UNKNOWN INDICATION
     Dosage: 50 MG, UNKNOWN/D
     Route: 048
  2. MYRBETRIQ [Suspect]
     Dosage: 25 MG, UNKNOWN/D
     Route: 048

REACTIONS (4)
  - Intentional drug misuse [Unknown]
  - Dysuria [Unknown]
  - Constipation [Unknown]
  - Muscle spasms [Unknown]
